FAERS Safety Report 5475696-6 (Version None)
Quarter: 2007Q4

REPORT INFORMATION
  Report Type: 
  Country: None (occurrence: None)
  Receive Date: 20071001
  Receipt Date: 20070919
  Transmission Date: 20080405
  Serious: Yes (Death)
  Sender: FDA-Public Use
  Company Number: 07H-163-0313232-00

PATIENT

DRUGS (4)
  1. FENTANYL CITRATE [Suspect]
     Indication: PAIN
  2. COCAINE (COCAINE) [Concomitant]
  3. BENZOYLECGONINE (ECGONINE BENZOATE) [Concomitant]
  4. ETHANOL (ETHANOL) [Concomitant]

REACTIONS (2)
  - ACCIDENTAL OVERDOSE [None]
  - DRUG TOXICITY [None]
